FAERS Safety Report 6073187-5 (Version None)
Quarter: 2009Q1

REPORT INFORMATION
  Report Type: 
  Country: None (occurrence: None)
  Receive Date: 20090206
  Receipt Date: 20090203
  Transmission Date: 20090719
  Serious: Yes (Death, Hospitalization)
  Sender: FDA-Public Use
  Company Number: THQ2009A00513

PATIENT
  Age: 65 Year
  Sex: Female

DRUGS (1)
  1. PIOGLITAZONE HCL [Suspect]
     Dosage: 15 MG

REACTIONS (3)
  - CARDIAC FAILURE [None]
  - INJURY [None]
  - OEDEMA [None]
